FAERS Safety Report 25993782 (Version 1)
Quarter: 2025Q4

REPORT INFORMATION
  Report Type: Spontaneous
  Country: US (occurrence: US)
  Receive Date: 20251104
  Receipt Date: 20251104
  Transmission Date: 20260117
  Serious: No
  Sender: BAUSCH AND LOMB
  Company Number: US-BAUSCH-BH-2025-019173

PATIENT
  Sex: Male

DRUGS (1)
  1. IMIQUIMOD [Suspect]
     Active Substance: IMIQUIMOD
     Indication: Rash pruritic
     Route: 065
     Dates: start: 202510

REACTIONS (4)
  - Application site vesicles [Unknown]
  - Application site pain [Unknown]
  - Application site haemorrhage [Unknown]
  - Application site pruritus [Unknown]

NARRATIVE: CASE EVENT DATE: 20251001
